FAERS Safety Report 5892030-8 (Version None)
Quarter: 2008Q3

REPORT INFORMATION
  Report Type: 
  Country: None (occurrence: None)
  Receive Date: 20080922
  Receipt Date: 20080825
  Transmission Date: 20090109
  Serious: No
  Sender: FDA-Public Use
  Company Number: US-B.I. PHARMACEUTICALS,INC./RIDGEFIELD-2008-BP-14527BP

PATIENT
  Age: 49 Year
  Sex: Female

DRUGS (2)
  1. MIRAPEX [Suspect]
     Indication: RESTLESS LEGS SYNDROME
     Dosage: 0.125MG/DAY - 2MG/DAY
     Dates: start: 20020626, end: 20071010
  2. SINEMET [Concomitant]
     Dates: start: 20001001, end: 20020626

REACTIONS (2)
  - PAIN [None]
  - PATHOLOGICAL GAMBLING [None]
